FAERS Safety Report 4470711-0 (Version None)
Quarter: 2004Q4

REPORT INFORMATION
  Report Type: 
  Country: None (occurrence: None)
  Receive Date: 20041005
  Receipt Date: 20040921
  Transmission Date: 20050328
  Serious: No
  Sender: FDA-Public Use
  Company Number: 208492

PATIENT
  Age: 75 Year
  Sex: Male

DRUGS (3)
  1. AVASTIN [Suspect]
     Indication: COLON CANCER METASTATIC
     Dosage: 350 MG, INTRAVENOUS
     Route: 042
     Dates: start: 20040414
  2. FLUOROURACIL [Concomitant]
  3. LEUCOVORIN CALCIUM [Concomitant]

REACTIONS (1)
  - ASEPTIC NECROSIS BONE [None]
